FAERS Safety Report 4519087-0 (Version None)
Quarter: 2004Q4

REPORT INFORMATION
  Report Type: 
  Country: None (occurrence: None)
  Receive Date: 20041206
  Receipt Date: 20041130
  Transmission Date: 20050328
  Serious: Yes (Hospitalization)
  Sender: FDA-Public Use
  Company Number: 200419179US

PATIENT
  Sex: Male
  Weight: 100 kg

DRUGS (7)
  1. DDAVP [Suspect]
     Dosage: DOSE: UNK
  2. DITROPAN XL [Suspect]
     Indication: HYPERTONIC BLADDER
     Dates: start: 20040801
  3. GLUCOVANCE [Concomitant]
     Dosage: DOSE: UNK
  4. TOPROL-XL [Concomitant]
     Dosage: DOSE: UNK
  5. AVAPRO [Concomitant]
     Dosage: DOSE: UNK
  6. TRICOR [Concomitant]
     Dosage: DOSE: UNK
  7. LANTUS [Concomitant]
     Dosage: DOSE: UNK

REACTIONS (4)
  - BALANCE DISORDER [None]
  - DRY MOUTH [None]
  - FALL [None]
  - POLLAKIURIA [None]
